FAERS Safety Report 5176378-0 (Version None)
Quarter: 2006Q4

REPORT INFORMATION
  Report Type: 
  Country: None (occurrence: None)
  Receive Date: 20061215
  Receipt Date: 20061126
  Transmission Date: 20070319
  Serious: Yes (Hospitalization)
  Sender: FDA-Public Use
  Company Number: US-AMGEN-US201447

PATIENT
  Sex: Male
  Weight: 66.7 kg

DRUGS (6)
  1. DARBEPOETIN ALFA [Suspect]
     Indication: ANAEMIA OF MALIGNANT DISEASE
     Route: 058
     Dates: start: 20050818
  2. NEURONTIN [Concomitant]
  3. VICODIN [Concomitant]
  4. DIFLUCAN [Concomitant]
     Route: 048
  5. ZOSYN [Concomitant]
  6. TPN [Concomitant]
     Dates: start: 20050901

REACTIONS (1)
  - RETROPERITONEAL ABSCESS [None]
